FAERS Safety Report 12581389 (Version 4)
Quarter: 2016Q3

REPORT INFORMATION
  Report Type: Spontaneous
  Country: BR (occurrence: BR)
  Receive Date: 20160721
  Receipt Date: 20160830
  Transmission Date: 20161109
  Serious: Yes (Hospitalization, Other)
  Sender: FDA-Public Use
  Company Number: BR-TEVA-676516ISR

PATIENT
  Age: 79 Year
  Sex: Female
  Weight: 47 kg

DRUGS (2)
  1. TEVAOXALI [Suspect]
     Active Substance: OXALIPLATIN
     Indication: COLON CANCER
     Route: 042
  2. XELODA [Concomitant]
     Active Substance: CAPECITABINE

REACTIONS (6)
  - Respiratory failure [Recovered/Resolved]
  - Oxygen saturation decreased [Recovered/Resolved]
  - Laryngospasm [Recovered/Resolved]
  - Dysaesthesia pharynx [Unknown]
  - Laryngospasm [Unknown]
  - Throat irritation [Unknown]

NARRATIVE: CASE EVENT DATE: 20160627
